FAERS Safety Report 13622616 (Version 2)
Quarter: 2017Q2

REPORT INFORMATION
  Report Type: Spontaneous
  Country: JP (occurrence: JP)
  Receive Date: 20170607
  Receipt Date: 20170621
  Transmission Date: 20170830
  Serious: Yes (Death)
  Sender: FDA-Public Use
  Company Number: JP-SEATTLE GENETICS-2017SGN01381

PATIENT
  Age: 75 Year
  Sex: Male

DRUGS (1)
  1. ADCETRIS [Suspect]
     Active Substance: BRENTUXIMAB VEDOTIN
     Indication: ANAPLASTIC LARGE-CELL LYMPHOMA
     Dosage: 1.8 MG/KG, Q21D
     Route: 041
     Dates: start: 20170601, end: 20170601

REACTIONS (1)
  - Anaplastic large-cell lymphoma [Fatal]

NARRATIVE: CASE EVENT DATE: 20170602
